FAERS Safety Report 16823278 (Version 1)
Quarter: 2019Q3

REPORT INFORMATION
  Report Type: Spontaneous
  Country: CN (occurrence: CN)
  Receive Date: 20190918
  Receipt Date: 20190918
  Transmission Date: 20191005
  Serious: Yes (Hospitalization, Other)
  Sender: FDA-Public Use
  Company Number: CN-ACELLA PHARMACEUTICALS, LLC-2074611

PATIENT
  Age: 39 Year
  Sex: Male

DRUGS (4)
  1. HYDROCODONE BITARTRATE AND CHLORPHENIRAMINE MALEATE [Suspect]
     Active Substance: CHLORPHENIRAMINE MALEATE\HYDROCODONE BITARTRATE
     Indication: PRODUCT USED FOR UNKNOWN INDICATION
  2. CAFFEINE. [Suspect]
     Active Substance: CAFFEINE
  3. ARTIFICIAL COW-BEZOAR [Suspect]
     Active Substance: BOS TAURUS GALLSTONE
  4. ACETAMINOPHEN. [Suspect]
     Active Substance: ACETAMINOPHEN

REACTIONS (4)
  - Choroidal effusion [Recovered/Resolved]
  - Acute myopia [Recovered/Resolved]
  - Angle closure glaucoma [Recovered/Resolved]
  - Vision blurred [Recovered/Resolved]
